FAERS Safety Report 25249541 (Version 2)
Quarter: 2025Q3

REPORT INFORMATION
  Report Type: Report from Study
  Country: EU (occurrence: EU)
  Receive Date: 20250429
  Receipt Date: 20250729
  Transmission Date: 20251021
  Serious: Yes (Other)
  Sender: JOHNSON AND JOHNSON
  Company Number: EU-JNJFOC-20250435347

PATIENT
  Age: 63 Year
  Sex: Male

DRUGS (3)
  1. TECLISTAMAB [Suspect]
     Active Substance: TECLISTAMAB
     Indication: Plasma cell myeloma
     Dates: start: 20230721, end: 20230721
  2. TECLISTAMAB [Suspect]
     Active Substance: TECLISTAMAB
     Dates: start: 20230713, end: 20230713
  3. TECLISTAMAB [Suspect]
     Active Substance: TECLISTAMAB
     Dates: start: 20230718, end: 20230718

REACTIONS (3)
  - Cytokine release syndrome [Recovered/Resolved]
  - Clostridium difficile colitis [Recovered/Resolved]
  - COVID-19 [Recovered/Resolved]

NARRATIVE: CASE EVENT DATE: 20230714
